FAERS Safety Report 9306769 (Version 2)
Quarter: 2013Q3

REPORT INFORMATION
  Report Type: Spontaneous
  Country: US (occurrence: US)
  Receive Date: 20130523
  Receipt Date: 20130711
  Transmission Date: 20140515
  Serious: No
  Sender: FDA-Public Use
  Company Number: US-ASTRAZENECA-2013SE33925

PATIENT
  Age: 73 Year
  Sex: Male
  Weight: 72.6 kg

DRUGS (14)
  1. SYMBICORT [Suspect]
     Indication: CHRONIC OBSTRUCTIVE PULMONARY DISEASE
     Dosage: 320 MCG, TWO TIMES A DAY
     Route: 055
     Dates: start: 2012
  2. SYMBICORT [Suspect]
     Indication: EMPHYSEMA
     Dosage: 320 MCG, TWO TIMES A DAY
     Route: 055
     Dates: start: 2012
  3. SYMBICORT [Suspect]
     Indication: ASTHMA
     Dosage: 320 MCG, TWO TIMES A DAY
     Route: 055
     Dates: start: 2012
  4. METOPROLOL [Suspect]
     Route: 048
  5. OMEPRAZOLE [Suspect]
     Indication: DYSPEPSIA
     Route: 048
  6. ATROVENT [Concomitant]
     Dosage: .06
  7. SINGULAIR [Concomitant]
  8. LIPITOR [Concomitant]
  9. FLOMAX [Concomitant]
     Dosage: 0.4
  10. ZYRTEC [Concomitant]
  11. VALIUM [Concomitant]
  12. PROAIR [Concomitant]
     Dosage: 180/90 PRN
  13. ASA [Concomitant]
  14. TYLENOL [Concomitant]

REACTIONS (1)
  - Candida infection [Unknown]
